FAERS Safety Report 11211811 (Version 1)
Quarter: 2015Q2

REPORT INFORMATION
  Report Type: Spontaneous
  Country: US (occurrence: US)
  Receive Date: 20150623
  Receipt Date: 20150623
  Transmission Date: 20150821
  Serious: Yes (Hospitalization, Disabling)
  Sender: FDA-Public Use
  Company Number: US-ENDO PHARMACEUTICALS INC.-201410064

PATIENT
  Age: 58 Year
  Sex: Male

DRUGS (16)
  1. TESTODERM [Suspect]
     Active Substance: TESTOSTERONE
     Route: 062
     Dates: start: 2007, end: 2007
  2. ANDROGEL [Suspect]
     Active Substance: TESTOSTERONE
     Indication: ANDROGEN REPLACEMENT THERAPY
     Route: 061
     Dates: start: 2005, end: 2006
  3. DEPO-TESTOSTERONE [Suspect]
     Active Substance: TESTOSTERONE CYPIONATE
     Indication: ANDROGEN REPLACEMENT THERAPY
     Route: 030
     Dates: start: 1986, end: 1988
  4. AXIRON [Suspect]
     Active Substance: TESTOSTERONE
     Indication: ANDROGEN REPLACEMENT THERAPY
     Route: 065
     Dates: start: 201407
  5. TESTODERM [Suspect]
     Active Substance: TESTOSTERONE
     Indication: ANDROGEN REPLACEMENT THERAPY
     Dosage: ^SOMETIME PRIOR TO 1998^?PATCH APPLIED TO SCROTUM
     Route: 062
     Dates: start: 1997
  6. TESTIM [Suspect]
     Active Substance: TESTOSTERONE
     Indication: ANDROGEN REPLACEMENT THERAPY
     Route: 062
     Dates: start: 2008, end: 201406
  7. TESTOSTERONE ENANTATE [Suspect]
     Active Substance: TESTOSTERONE
     Indication: ANDROGEN REPLACEMENT THERAPY
     Route: 030
     Dates: start: 2005, end: 2007
  8. ANDRODERM [Suspect]
     Active Substance: TESTOSTERONE
     Indication: ANDROGEN REPLACEMENT THERAPY
     Route: 062
     Dates: start: 1998, end: 1999
  9. DELATESTRYL [Suspect]
     Active Substance: TESTOSTERONE ENANTHATE
     Indication: ANDROGEN REPLACEMENT THERAPY
     Dosage: 200 MG EVERY THREE WEEKS; 200 MG EVERY TWO WEEKS
     Route: 030
     Dates: start: 1988, end: 1988
  10. ANDRODERM [Suspect]
     Active Substance: TESTOSTERONE
     Route: 062
     Dates: start: 2007, end: 2007
  11. AXIRON [Suspect]
     Active Substance: TESTOSTERONE
     Route: 062
     Dates: start: 2007, end: 2007
  12. DELATESTRYL [Suspect]
     Active Substance: TESTOSTERONE ENANTHATE
     Dosage: 200 MG EVERY THREE WEEKS; 200 MG EVERY TWO WEEKS
     Route: 030
     Dates: start: 1999, end: 2005
  13. TESTODERM [Suspect]
     Active Substance: TESTOSTERONE
     Route: 062
     Dates: start: 1999, end: 1999
  14. ANDRODERM [Suspect]
     Active Substance: TESTOSTERONE
     Route: 062
     Dates: start: 1999, end: 1999
  15. ANDROGEL [Suspect]
     Active Substance: TESTOSTERONE
     Route: 061
     Dates: start: 2008, end: 2008
  16. AXIRON [Suspect]
     Active Substance: TESTOSTERONE
     Route: 062
     Dates: start: 1999, end: 1999

REACTIONS (23)
  - Peripheral vascular disorder [Not Recovered/Not Resolved]
  - Back pain [None]
  - Fear [Unknown]
  - Back injury [None]
  - Deafness [None]
  - Musculoskeletal pain [None]
  - Hypertension [None]
  - Post procedural complication [None]
  - Gait disturbance [None]
  - Panic attack [None]
  - Anhedonia [None]
  - Cardiac disorder [None]
  - Joint injury [None]
  - Testicular injury [None]
  - Peripheral arterial reocclusion [None]
  - Non-cardiac chest pain [Not Recovered/Not Resolved]
  - Fear of disease [None]
  - Limb injury [None]
  - Musculoskeletal chest pain [None]
  - Angina pectoris [None]
  - Emotional distress [Unknown]
  - Fear of death [None]
  - Carotid artery disease [None]

NARRATIVE: CASE EVENT DATE: 20110421
